FAERS Safety Report 12756784 (Version 2)
Quarter: 2016Q3

REPORT INFORMATION
  Report Type: Spontaneous
  Country: NL (occurrence: NL)
  Receive Date: 20160917
  Receipt Date: 20160926
  Transmission Date: 20161109
  Serious: Yes (Other)
  Sender: FDA-Public Use
  Company Number: NL-AUROBINDO-AUR-APL-2016-11690

PATIENT
  Sex: Male
  Weight: 96 kg

DRUGS (1)
  1. METFORMINE HCI AUROBINDO 500 MG FILM COATED TABLETS [Suspect]
     Active Substance: METFORMIN HYDROCHLORIDE
     Indication: TYPE 2 DIABETES MELLITUS
     Dosage: 500MG
     Route: 048
     Dates: start: 2013, end: 20160822

REACTIONS (3)
  - Iron metabolism disorder [Recovering/Resolving]
  - Diabetes mellitus inadequate control [Recovering/Resolving]
  - Hepatitis [Recovering/Resolving]

NARRATIVE: CASE EVENT DATE: 2016
